FAERS Safety Report 9286649 (Version 1)
Quarter: 2013Q2

REPORT INFORMATION
  Report Type: Spontaneous
  Country: ES (occurrence: ES)
  Receive Date: 20130513
  Receipt Date: 20130513
  Transmission Date: 20140414
  Serious: Yes (Other)
  Sender: FDA-Public Use
  Company Number: ES-JHP PHARMACEUTICALS, LLC-JHP201300294

PATIENT
  Age: 75 Year
  Sex: Male
  Weight: 85 kg

DRUGS (1)
  1. COLY-MYCIN M PARENTERAL [Suspect]
     Indication: PSEUDOMONAS INFECTION
     Dosage: 3 MIU EVERY 8 HOURS
     Route: 042

REACTIONS (7)
  - Asthenia [Not Recovered/Not Resolved]
  - Paralysis flaccid [Not Recovered/Not Resolved]
  - Respiratory failure [Not Recovered/Not Resolved]
  - Hypocalcaemia [Recovered/Resolved]
  - Tachypnoea [Not Recovered/Not Resolved]
  - Dyspnoea [Not Recovered/Not Resolved]
  - Apnoea [Not Recovered/Not Resolved]
